FAERS Safety Report 8629706 (Version 4)
Quarter: 2014Q1

REPORT INFORMATION
  Report Type: Spontaneous
  Country: US (occurrence: US)
  Receive Date: 20120622
  Receipt Date: 20140116
  Transmission Date: 20141002
  Serious: Yes (Hospitalization, Disabling, Other)
  Sender: FDA-Public Use
  Company Number: US-ASTRAZENECA-2012SE36287

PATIENT
  Age: 67 Year
  Sex: Male
  Weight: 111.1 kg

DRUGS (9)
  1. NEXIUM [Suspect]
     Indication: GASTROOESOPHAGEAL REFLUX DISEASE
     Route: 048
     Dates: start: 20060327
  2. NEXIUM [Suspect]
     Indication: GASTROOESOPHAGEAL REFLUX DISEASE
     Route: 048
     Dates: start: 2007, end: 2010
  3. PRILOSEC OTC [Suspect]
     Route: 048
  4. OMEPRAZOLE [Suspect]
     Route: 048
  5. GLIPIZIDE ER [Concomitant]
     Dates: start: 20060110
  6. SMZ/TMP DS [Concomitant]
     Dosage: 800-160
     Dates: start: 20060327
  7. NAPROXEN [Concomitant]
     Dates: start: 20060419
  8. TUMS [Concomitant]
  9. ALKA SELTZER [Concomitant]

REACTIONS (7)
  - Wrist fracture [Unknown]
  - Radius fracture [Unknown]
  - Fall [Unknown]
  - Arthritis [Unknown]
  - Osteoporosis [Unknown]
  - Upper limb fracture [Unknown]
  - Diabetes mellitus [Unknown]
